FAERS Safety Report 15104272 (Version 1)
Quarter: 2018Q2

REPORT INFORMATION
  Report Type: Spontaneous
  Country: US (occurrence: US)
  Receive Date: 20180611
  Receipt Date: 20180611
  Transmission Date: 20180711
  Serious: Yes (Other)
  Sender: FDA-Public Use
  Company Number: None

PATIENT
  Age: 67 Year
  Sex: Female
  Weight: 76.5 kg

DRUGS (10)
  1. GABAPENTIN. [Concomitant]
     Active Substance: GABAPENTIN
  2. OMEPRAZOLE. [Concomitant]
     Active Substance: OMEPRAZOLE
  3. SPIRONOLACTONE. [Concomitant]
     Active Substance: SPIRONOLACTONE
  4. CAPECITABINE. [Suspect]
     Active Substance: CAPECITABINE
     Indication: BREAST CANCER
     Route: 048
     Dates: start: 20180201, end: 20180611
  5. ASPIRIN. [Concomitant]
     Active Substance: ASPIRIN
  6. CORLANOR [Concomitant]
     Active Substance: IVABRADINE HYDROCHLORIDE
  7. CARVEDILOL. [Concomitant]
     Active Substance: CARVEDILOL
  8. LASIX [Concomitant]
     Active Substance: FUROSEMIDE
  9. CLARITIN [Concomitant]
     Active Substance: LORATADINE
  10. ENTRESTO [Concomitant]
     Active Substance: SACUBITRIL\VALSARTAN

REACTIONS (1)
  - Disease progression [None]
